FAERS Safety Report 12991349 (Version 3)
Quarter: 2017Q1

REPORT INFORMATION
  Report Type: Spontaneous
  Country: AU (occurrence: AU)
  Receive Date: 20161201
  Receipt Date: 20170206
  Transmission Date: 20170428
  Serious: Yes (Life-Threatening, Hospitalization, Disabling, Other)
  Sender: FDA-Public Use
  Company Number: AU-PFIZER INC-2016554045

PATIENT
  Age: 75 Year
  Sex: Female

DRUGS (16)
  1. PANADOL [Concomitant]
     Active Substance: ACETAMINOPHEN
     Dosage: 2 CAPLETS, THREE TIMES A DAY AS NEEDED
     Dates: start: 20141217
  2. GLUCOSAMINE HCL [Concomitant]
     Active Substance: GLUCOSAMINE
     Dosage: UNK
     Dates: start: 20141217
  3. ATORVASTATIN [Concomitant]
     Active Substance: ATORVASTATIN
     Dosage: 10 MG, DAILY
     Dates: start: 20141217
  4. NORSPAN [Concomitant]
     Active Substance: BUPRENORPHINE
     Dosage: 20 MG (1 PATCH), WEEKLY
     Route: 062
     Dates: start: 20160205
  5. COVERSYL /00790703/ [Concomitant]
     Active Substance: PERINDOPRIL
     Dosage: 2.5 MG, DAILY
  6. ENDEP [Concomitant]
     Active Substance: AMITRIPTYLINE HYDROCHLORIDE
     Dosage: 25 MG, DAILY (AT NIGHT)
     Dates: start: 20160205
  7. METHOTREXATE. [Concomitant]
     Active Substance: METHOTREXATE
     Dosage: 20 MG, WEEKLY
  8. PREMARIN [Concomitant]
     Active Substance: ESTROGENS, CONJUGATED
     Dosage: 0.3 MG (1 TABLET), DAILY
     Dates: start: 20141217
  9. FOLIC ACID. [Concomitant]
     Active Substance: FOLIC ACID
     Dosage: 5 MG, UNK
     Dates: end: 201607
  10. TOFACITINIB CITRATE [Suspect]
     Active Substance: TOFACITINIB CITRATE
     Indication: RHEUMATOID ARTHRITIS
     Dosage: 5 MG, 2X/DAY
     Route: 048
     Dates: start: 20160505, end: 201607
  11. CALTRATE WITH VITAMIN D [Concomitant]
     Active Substance: CALCIUM CARBONATE\CHOLECALCIFEROL
     Dosage: 1 TABLET (600MG/500IU), DAILY
     Dates: start: 20141217
  12. CHOLECALCIFEROL [Concomitant]
     Active Substance: CHOLECALCIFEROL
     Dosage: 25 NG, DAILY
     Dates: start: 20141217
  13. AMLODIPINE [Concomitant]
     Active Substance: AMLODIPINE BESYLATE
     Dosage: 5 MG, DAILY
     Dates: start: 20160905
  14. METHOTREXATE. [Concomitant]
     Active Substance: METHOTREXATE
     Dosage: 10 MG, WEEKLY
     Dates: end: 201607
  15. FRUSEMIDE /00032601/ [Concomitant]
     Active Substance: FUROSEMIDE
     Dosage: 20 MG, DAILY
     Dates: start: 20141217
  16. LEFLUNOMIDE. [Concomitant]
     Active Substance: LEFLUNOMIDE
     Dosage: UNK

REACTIONS (3)
  - Pneumonia cytomegaloviral [Recovered/Resolved with Sequelae]
  - Renal impairment [Not Recovered/Not Resolved]
  - Pneumonia pseudomonal [Recovered/Resolved with Sequelae]

NARRATIVE: CASE EVENT DATE: 20160802
